FAERS Safety Report 10862748 (Version 1)
Quarter: 2015Q1

REPORT INFORMATION
  Report Type: Spontaneous
  Country: None (occurrence: None)
  Receive Date: 20150219
  Receipt Date: 20150219
  Transmission Date: 20150721
  Serious: No
  Sender: FDA-Public Use
  Company Number: None

PATIENT
  Age: 55 Year
  Sex: Male

DRUGS (2)
  1. RIBAVRIN TABLETS [Suspect]
     Active Substance: RIBAVIRIN
  2. SOVALDI [Suspect]
     Active Substance: SOFOSBUVIR
     Indication: HEPATITIS C
     Dosage: ONE TAB
     Route: 048

REACTIONS (5)
  - Fatigue [None]
  - Impaired work ability [None]
  - Anxiety [None]
  - Activities of daily living impaired [None]
  - Insomnia [None]

NARRATIVE: CASE EVENT DATE: 20150218
